FAERS Safety Report 7899480 (Version 2)
Quarter: 2012Q4

REPORT INFORMATION
  Report Type: 
  Country: CH (occurrence: CH)
  Receive Date: 20110414
  Receipt Date: 20121214
  Transmission Date: 20130627
  Serious: Yes (Hospitalization, Other)
  Sender: FDA-Public Use
  Company Number: CH-MERCK-1103USA03226

PATIENT
  Age: 86 Year
  Sex: Female

DRUGS (7)
  1. JANUVIA [Suspect]
     Indication: TYPE 2 DIABETES MELLITUS
     Dosage: 100 mg, qd
     Route: 048
     Dates: start: 201012, end: 20110119
  2. DUROGESIC [Suspect]
     Indication: BACK PAIN
     Dosage: every 3 days, 2x week
     Route: 062
     Dates: start: 2007, end: 20110117
  3. DETRUSITOL [Suspect]
     Dosage: 4 mg, qd
     Route: 048
     Dates: start: 201012, end: 20110119
  4. REMERON [Suspect]
     Dosage: 30 mg, qd
     Route: 048
     Dates: start: 20110107, end: 20110119
  5. MOTILIUM [Concomitant]
     Dosage: 10 mg, tid
     Route: 048
     Dates: start: 201012, end: 20110119
  6. DAFALGAN [Concomitant]
     Dosage: 1 g, qid
     Route: 048
     Dates: end: 20110121
  7. LIORAM [Concomitant]
     Dosage: 5 mg, qd
     Route: 048

REACTIONS (20)
  - Nausea [Recovered/Resolved]
  - Vomiting [Recovered/Resolved]
  - Constipation [Recovered/Resolved]
  - Enterococcal sepsis [Recovered/Resolved]
  - Weight decreased [Unknown]
  - General physical health deterioration [Unknown]
  - Decreased appetite [Unknown]
  - C-reactive protein increased [Recovered/Resolved]
  - Leukocytosis [Recovered/Resolved]
  - Hypokalaemia [Recovered/Resolved]
  - Hyponatraemia [Recovered/Resolved]
  - Liver function test abnormal [Recovered/Resolved]
  - Shift to the left [Recovered/Resolved]
  - Rash pruritic [Recovered/Resolved]
  - Escherichia bacteraemia [Recovering/Resolving]
  - Hepatitis [Recovered/Resolved]
  - Escherichia urinary tract infection [Recovering/Resolving]
  - Rash macular [Recovered/Resolved]
  - Abdominal pain upper [Recovered/Resolved]
  - Tachycardia [Recovered/Resolved]
